FAERS Safety Report 22294005 (Version 3)
Quarter: 2023Q4

REPORT INFORMATION
  Report Type: Spontaneous
  Country: IN (occurrence: IN)
  Receive Date: 20230508
  Receipt Date: 20231016
  Transmission Date: 20240110
  Serious: Yes (Other)
  Sender: FDA-Public Use
  Company Number: IN-PFIZER INC-PV202300080245

PATIENT
  Age: 56 Year
  Sex: Female

DRUGS (3)
  1. PALBOCICLIB [Suspect]
     Active Substance: PALBOCICLIB
     Indication: Breast cancer
     Dosage: 75 MG, CYCLIC (ONCE A DAY 3 WEEKS ON AND 1 WEEK OFF)
     Route: 048
     Dates: start: 20230417
  2. FULVESTRANT [Concomitant]
     Active Substance: FULVESTRANT
     Dosage: 250 MG B/L BUTTOCK
  3. CORALIUM D3 [Concomitant]
     Dosage: UNK, 1X/DAY

REACTIONS (4)
  - Syncope [Unknown]
  - Asthenia [Unknown]
  - Vomiting [Unknown]
  - Pyrexia [Unknown]
